FAERS Safety Report 15228174 (Version 1)
Quarter: 2018Q3

REPORT INFORMATION
  Report Type: Report from Study
  Country: US (occurrence: US)
  Receive Date: 20180801
  Receipt Date: 20180801
  Transmission Date: 20181010
  Serious: Yes (Other)
  Sender: FDA-Public Use
  Company Number: US-SA-2018SA126945

PATIENT
  Age: 21 Year
  Sex: Male

DRUGS (5)
  1. CLOBETASOL [Concomitant]
     Active Substance: CLOBETASOL
     Indication: ECZEMA
     Dosage: UNK UNK, BID
  2. EPIPEN [Concomitant]
     Active Substance: EPINEPHRINE
     Indication: FOOD ALLERGY
     Dosage: UNK UNK, PRN
     Dates: start: 201801
  3. PROFIN [Concomitant]
     Indication: ASTHMA
     Dosage: 2 PUFFS AS NEEDED EVERY 46 HRS
  4. DUPILUMAB [Suspect]
     Active Substance: DUPILUMAB
     Indication: DERMATITIS ALLERGIC
     Dosage: 600 UNK
     Route: 058
     Dates: start: 20180228, end: 201803
  5. EUCRISA [Concomitant]
     Active Substance: CRISABOROLE
     Indication: ECZEMA
     Dosage: UNK UNK, BID
     Dates: start: 201804

REACTIONS (9)
  - Tunnel vision [Recovered/Resolved]
  - Hypotension [Unknown]
  - Loss of consciousness [Recovered/Resolved]
  - Dizziness [Recovered/Resolved]
  - Feeling hot [Recovered/Resolved]
  - Heart rate decreased [Unknown]
  - Product use issue [Unknown]
  - Syncope [Recovered/Resolved]
  - Loss of consciousness [Recovered/Resolved]

NARRATIVE: CASE EVENT DATE: 20180302
